FAERS Safety Report 16536305 (Version 1)
Quarter: 2019Q3

REPORT INFORMATION
  Report Type: Spontaneous
  Country: US (occurrence: US)
  Receive Date: 20190705
  Receipt Date: 20190705
  Transmission Date: 20191004
  Serious: No
  Sender: FDA-Public Use
  Company Number: US-PFIZER INC-2018108142

PATIENT
  Age: 57 Year
  Sex: Female

DRUGS (2)
  1. RAPAMUNE [Interacting]
     Active Substance: SIROLIMUS
     Dosage: 3 MG, DAILY (6 TABLETS BY MOUTH DAILY)
     Route: 048
  2. RAPAMUNE [Suspect]
     Active Substance: SIROLIMUS
     Indication: LUNG TRANSPLANT
     Dosage: 2 MG, DAILY (4 TABLETS BY MOUTH DAILY)
     Route: 048

REACTIONS (3)
  - Product use in unapproved indication [Unknown]
  - Off label use [Unknown]
  - Drug interaction [Unknown]
